FAERS Safety Report 13564828 (Version 2)
Quarter: 2017Q2

REPORT INFORMATION
  Report Type: Report from Study
  Country: US (occurrence: US)
  Receive Date: 20170519
  Receipt Date: 20170531
  Transmission Date: 20170830
  Serious: No
  Sender: FDA-Public Use
  Company Number: US-JAZZ-2017-US-005330

PATIENT
  Sex: Female

DRUGS (22)
  1. XYREM [Suspect]
     Active Substance: SODIUM OXYBATE
     Indication: NARCOLEPSY
     Dosage: 3 G, BID
     Route: 048
     Dates: start: 200510, end: 200511
  2. EFFEXOR [Concomitant]
     Active Substance: VENLAFAXINE HYDROCHLORIDE
  3. CYCLOBENZAPRINE. [Concomitant]
     Active Substance: CYCLOBENZAPRINE
  4. LIDOCAINE. [Concomitant]
     Active Substance: LIDOCAINE
  5. TEMAZEPAM. [Concomitant]
     Active Substance: TEMAZEPAM
  6. DOXEPIN [Concomitant]
     Active Substance: DOXEPIN
  7. AMBIEN [Concomitant]
     Active Substance: ZOLPIDEM TARTRATE
  8. TRIAMCINOLONE ACETONIDE. [Concomitant]
     Active Substance: TRIAMCINOLONE ACETONIDE
  9. LORTAB [Concomitant]
     Active Substance: ACETAMINOPHEN\HYDROCODONE BITARTRATE
  10. XYREM [Suspect]
     Active Substance: SODIUM OXYBATE
     Dosage: DOSE ADJUSTMENT
     Route: 048
     Dates: start: 2006, end: 2017
  11. IBUPROFEN. [Concomitant]
     Active Substance: IBUPROFEN
  12. PROGESTERONE. [Concomitant]
     Active Substance: PROGESTERONE
  13. DIFLUCAN [Concomitant]
     Active Substance: FLUCONAZOLE
  14. XYREM [Suspect]
     Active Substance: SODIUM OXYBATE
     Dosage: 4.5 G, BID
     Route: 048
     Dates: start: 201702
  15. CORTISOL [Concomitant]
     Active Substance: HYDROCORTISONE
  16. TESTOSTERONE. [Concomitant]
     Active Substance: TESTOSTERONE
  17. PROVIGIL [Concomitant]
     Active Substance: MODAFINIL
  18. NYSTATIN. [Concomitant]
     Active Substance: NYSTATIN
  19. NUVIGIL [Concomitant]
     Active Substance: ARMODAFINIL
  20. XODOL [Concomitant]
     Active Substance: ACETAMINOPHEN\HYDROCODONE BITARTRATE
  21. VITAMIN D3 [Concomitant]
     Active Substance: CHOLECALCIFEROL
  22. HEPARIN [Concomitant]
     Active Substance: HEPARIN SODIUM

REACTIONS (2)
  - Poor quality sleep [Not Recovered/Not Resolved]
  - Insomnia [Unknown]
